FAERS Safety Report 20566060 (Version 1)
Quarter: 2022Q1

REPORT INFORMATION
  Report Type: Spontaneous
  Country: US (occurrence: US)
  Receive Date: 20220308
  Receipt Date: 20220308
  Transmission Date: 20220424
  Serious: Yes (Life-Threatening, Other)
  Sender: FDA-Public Use
  Company Number: US-VELOXIS PHARMACEUTCALS-2022VELUS-000128

PATIENT
  Age: 15 Year
  Sex: Male

DRUGS (7)
  1. TACROLIMUS [Suspect]
     Active Substance: TACROLIMUS
  2. RITUXIMAB [Concomitant]
     Active Substance: RITUXIMAB
     Indication: Pericardial effusion
     Dosage: UNK
  3. RITUXIMAB [Concomitant]
     Active Substance: RITUXIMAB
     Indication: Coombs positive haemolytic anaemia
  4. HUMAN IMMUNOGLOBULIN G [Concomitant]
     Active Substance: HUMAN IMMUNOGLOBULIN G
     Indication: Pericardial effusion
  5. HUMAN IMMUNOGLOBULIN G [Concomitant]
     Active Substance: HUMAN IMMUNOGLOBULIN G
     Indication: Coombs positive haemolytic anaemia
  6. ECULIZUMAB [Concomitant]
     Active Substance: ECULIZUMAB
     Indication: Pericardial effusion
  7. ECULIZUMAB [Concomitant]
     Active Substance: ECULIZUMAB
     Indication: Coombs positive haemolytic anaemia

REACTIONS (10)
  - Thrombotic microangiopathy [Unknown]
  - Graft versus host disease in skin [Recovered/Resolved]
  - Graft versus host disease in gastrointestinal tract [Recovered/Resolved]
  - Steroid diabetes [Unknown]
  - Status epilepticus [Recovered/Resolved]
  - Hypertension [Unknown]
  - Posterior reversible encephalopathy syndrome [Recovered/Resolved]
  - Immunosuppressant drug level increased [Unknown]
  - Off label use [Unknown]
  - Product use issue [Unknown]
